FAERS Safety Report 17400738 (Version 1)
Quarter: 2020Q1

REPORT INFORMATION
  Report Type: Spontaneous
  Country: US (occurrence: US)
  Receive Date: 20200127
  Receipt Date: 20200127
  Transmission Date: 20200409
  Serious: Yes (Hospitalization)
  Sender: FDA-Public Use
  Company Number: None

PATIENT
  Age: 30 Year
  Sex: Female

DRUGS (7)
  1. COSENTYX [Suspect]
     Active Substance: SECUKINUMAB
     Indication: ANKYLOSING SPONDYLITIS
     Dosage: ?          OTHER FREQUENCY:EVERY 4 WEEKS;?
     Route: 058
     Dates: start: 20190218
  2. PERCOCET [Concomitant]
     Active Substance: ACETAMINOPHEN\OXYCODONE HYDROCHLORIDE
  3. NORTRIPTYLIN [Concomitant]
     Active Substance: NORTRIPTYLINE
  4. MELOXICAM. [Concomitant]
     Active Substance: MELOXICAM
  5. TROKENDI XR [Concomitant]
     Active Substance: TOPIRAMATE
  6. ONDANSETRON [Concomitant]
     Active Substance: ONDANSETRON
  7. LEFLUNOMIDE. [Concomitant]
     Active Substance: LEFLUNOMIDE

REACTIONS (3)
  - Influenza [None]
  - Upper respiratory tract infection [None]
  - Hip surgery [None]

NARRATIVE: CASE EVENT DATE: 20191225
